FAERS Safety Report 7737804-3 (Version None)
Quarter: 2011Q3

REPORT INFORMATION
  Report Type: 
  Country: None (occurrence: None)
  Receive Date: 20110908
  Receipt Date: 20110902
  Transmission Date: 20111222
  Serious: Yes (Other)
  Sender: FDA-Public Use
  Company Number: PHHY2011JP59299

PATIENT
  Sex: Male
  Weight: 45 kg

DRUGS (12)
  1. ORAL IRRIGATION [Concomitant]
     Route: 048
  2. ASPIRIN [Concomitant]
     Indication: PROPHYLAXIS
     Dosage: 100 MG, UNK
     Route: 048
     Dates: start: 20100121
  3. UFT [Concomitant]
     Dosage: 3 DF, UNK
     Route: 048
     Dates: start: 20110113
  4. DUTASTERIDE [Concomitant]
     Indication: BENIGN PROSTATIC HYPERPLASIA
     Dosage: 1 DF, UNK
     Route: 048
     Dates: start: 20100318, end: 20110112
  5. URIEF [Concomitant]
     Dosage: 2 DF, UNK
     Route: 048
     Dates: start: 20090203
  6. DECADRON [Concomitant]
     Indication: PROSTATE CANCER
     Dosage: 4 DF, UNK
     Route: 048
     Dates: start: 20100907
  7. LOXONIN [Concomitant]
     Route: 048
  8. ETHINYL ESTRADIOL [Concomitant]
     Indication: PROSTATE CANCER
     Route: 048
     Dates: start: 20100121
  9. ZOMETA [Suspect]
     Indication: METASTASES TO BONE
     Dosage: 4 MG, QMO
     Route: 041
     Dates: start: 20100121
  10. CANDESARTAN CILEXETIL [Concomitant]
     Indication: HYPERTENSION
     Dosage: 4 MG, UNK
     Route: 048
     Dates: start: 20091224
  11. MEIACT [Concomitant]
     Route: 048
  12. OMEPRAZOLE [Concomitant]
     Indication: GASTRIC ULCER
     Dosage: 10 MG, UNK
     Route: 048
     Dates: start: 20080729

REACTIONS (10)
  - OSTEOMYELITIS [None]
  - TOOTH DISORDER [None]
  - OSTEONECROSIS OF JAW [None]
  - SWELLING [None]
  - PAIN IN JAW [None]
  - SOFT TISSUE INFECTION [None]
  - ERYTHEMA [None]
  - GINGIVAL ABSCESS [None]
  - EXPOSED BONE IN JAW [None]
  - ORAL DISORDER [None]
